FAERS Safety Report 25311272 (Version 1)
Quarter: 2025Q2

REPORT INFORMATION
  Report Type: Spontaneous
  Country: CA (occurrence: CA)
  Receive Date: 20250514
  Receipt Date: 20250514
  Transmission Date: 20250717
  Serious: Yes (Death, Life-Threatening, Hospitalization)
  Sender: CELLTRION
  Company Number: CA-CELLTRION INC.-2025CA014193

PATIENT

DRUGS (1)
  1. RITUXIMAB [Suspect]
     Active Substance: RITUXIMAB
     Indication: Product used for unknown indication
     Route: 058

REACTIONS (3)
  - Abdominal distension [Fatal]
  - Off label use [Fatal]
  - Intentional product use issue [Unknown]
